FAERS Safety Report 18120635 (Version 2)
Quarter: 2020Q3

REPORT INFORMATION
  Report Type: Report from Study
  Country: GB (occurrence: GB)
  Receive Date: 20200806
  Receipt Date: 20200828
  Transmission Date: 20201103
  Serious: Yes (Hospitalization, Other)
  Sender: FDA-Public Use
  Company Number: GB-IPSEN BIOPHARMACEUTICALS, INC.-2020-02529

PATIENT
  Age: 71 Year
  Sex: Female

DRUGS (1)
  1. SOMATULINE AUTOGEL [Suspect]
     Active Substance: LANREOTIDE ACETATE
     Indication: NEUROENDOCRINE TUMOUR
     Dosage: 120 MG/0.5 ML
     Route: 058
     Dates: start: 202001

REACTIONS (7)
  - Asthenia [Unknown]
  - Back pain [Unknown]
  - Cachexia [Unknown]
  - Pneumonia [Recovering/Resolving]
  - Decubitus ulcer [Recovering/Resolving]
  - Injection site pain [Unknown]
  - Fall [Unknown]

NARRATIVE: CASE EVENT DATE: 2020
